FAERS Safety Report 9554261 (Version 1)
Quarter: 2013Q3

REPORT INFORMATION
  Report Type: Spontaneous
  Country: US (occurrence: US)
  Receive Date: 20130925
  Receipt Date: 20130925
  Transmission Date: 20140515
  Serious: Yes (Other)
  Sender: FDA-Public Use
  Company Number: US-MYLANLABS-2012S1021598

PATIENT
  Sex: Female

DRUGS (4)
  1. ALENDRONATE SODIUM TABLETS USP [Suspect]
     Indication: OSTEOPOROSIS
     Route: 048
  2. ALENDRONATE SODIUM TABLETS USP [Suspect]
     Indication: OSTEOPOROSIS PROPHYLAXIS
     Route: 048
  3. FOSAMAX [Suspect]
     Indication: OSTEOPOROSIS
     Route: 048
  4. FOSAMAX [Suspect]
     Indication: OSTEOPOROSIS PROPHYLAXIS
     Route: 048

REACTIONS (2)
  - Femur fracture [Not Recovered/Not Resolved]
  - Low turnover osteopathy [Not Recovered/Not Resolved]
